FAERS Safety Report 9142955 (Version 2)
Quarter: 2013Q2

REPORT INFORMATION
  Report Type: Spontaneous
  Country: US (occurrence: US)
  Receive Date: 20130306
  Receipt Date: 20130509
  Transmission Date: 20140414
  Serious: No
  Sender: FDA-Public Use
  Company Number: US-PFIZER INC-2013074510

PATIENT
  Age: 55 Year
  Sex: Male

DRUGS (4)
  1. MS CONTIN [Suspect]
     Indication: BREAKTHROUGH PAIN
     Dosage: 90 MG, 2X/DAY
     Route: 048
  2. MORPHINE SULFATE IR TABLET [Suspect]
     Indication: BREAKTHROUGH PAIN
     Dosage: 15 MG, AS NEEDED
  3. MORPHINE SULFATE IR TABLET [Suspect]
     Dosage: 15-30 MG Q-2-4HRS
     Route: 048
  4. TAMSULOSIN [Concomitant]
     Dosage: 0.4 MG, 2X/DAY

REACTIONS (1)
  - Constipation [Recovered/Resolved]
